FAERS Safety Report 8740299 (Version 3)
Quarter: 2013Q4

REPORT INFORMATION
  Report Type: Spontaneous
  Country: US (occurrence: US)
  Receive Date: 20120823
  Receipt Date: 20131101
  Transmission Date: 20140711
  Serious: No
  Sender: FDA-Public Use
  Company Number: US-009507513-1208USA007662

PATIENT
  Sex: Female
  Weight: 39.91 kg

DRUGS (7)
  1. PEPCID [Suspect]
     Indication: GASTROOESOPHAGEAL REFLUX DISEASE
     Dosage: 20 MG, BID
     Route: 048
     Dates: start: 2006
  2. ATENOLOL [Concomitant]
     Dosage: 12.5 MG, QD
  3. XANTHINE [Concomitant]
     Dosage: UNK
  4. RYTHMOL [Concomitant]
     Dosage: UNK
  5. FORADIL AEROLIZER [Concomitant]
     Dosage: UNK
  6. ALLOPURINOL [Concomitant]
     Dosage: UNK UNK, BID
  7. GLOBULIN, IMMUNE [Concomitant]
     Dosage: UNK

REACTIONS (2)
  - Foreign body [Unknown]
  - Coeliac disease [Unknown]
